FAERS Safety Report 4833037-9 (Version None)
Quarter: 2005Q4

REPORT INFORMATION
  Report Type: 
  Country: None (occurrence: None)
  Receive Date: 20051121
  Receipt Date: 20051109
  Transmission Date: 20060501
  Serious: Yes (Other)
  Sender: FDA-Public Use
  Company Number: AT-BRISTOL-MYERS SQUIBB COMPANY-13174214

PATIENT
  Age: 34 Year
  Sex: Male
  Weight: 100 kg

DRUGS (5)
  1. AMOXICILLIN [Suspect]
     Dates: start: 20050729, end: 20050731
  2. MAXIPIME [Suspect]
     Indication: SOFT TISSUE INFECTION
     Dates: start: 20050731, end: 20050807
  3. MAXIPIME [Suspect]
     Indication: SKIN INFECTION
     Dates: start: 20050731, end: 20050807
  4. MAXIPIME [Suspect]
     Indication: SEPSIS
     Dates: start: 20050731, end: 20050807
  5. CLINDAMYCIN [Concomitant]
     Dates: start: 20050731, end: 20050807

REACTIONS (2)
  - DRUG INEFFECTIVE [None]
  - TRANSAMINASES INCREASED [None]
